FAERS Safety Report 10186219 (Version 1)
Quarter: 2014Q2

REPORT INFORMATION
  Report Type: Spontaneous
  Country: PT (occurrence: PT)
  Receive Date: 20140521
  Receipt Date: 20140521
  Transmission Date: 20141212
  Serious: Yes (Other)
  Sender: FDA-Public Use
  Company Number: PT-VIIV HEALTHCARE LIMITED-B0979871A

PATIENT
  Age: 0 Day
  Sex: 0
  Weight: .6 kg

DRUGS (7)
  1. RETROVIR [Suspect]
     Indication: PROPHYLAXIS AGAINST HIV INFECTION
     Dosage: .9MG TWICE PER DAY
     Route: 042
     Dates: start: 20140312
  2. KALETRA [Suspect]
     Indication: HIV INFECTION
     Route: 064
  3. TRUVADA [Suspect]
     Indication: HIV INFECTION
     Route: 064
  4. FLUCONAZOL [Concomitant]
     Indication: PRODUCT USED FOR UNKNOWN INDICATION
     Route: 065
  5. CAFFEINE CITRATE [Concomitant]
     Indication: PRODUCT USED FOR UNKNOWN INDICATION
     Dosage: 1U PER DAY
     Dates: start: 20140312
  6. GENTAMYCIN [Concomitant]
     Indication: PRODUCT USED FOR UNKNOWN INDICATION
     Dosage: 1U PER DAY
     Dates: start: 20140312
  7. AMPICILLIN [Concomitant]
     Indication: PRODUCT USED FOR UNKNOWN INDICATION
     Dosage: 1U PER DAY
     Dates: start: 20140312, end: 20140319

REACTIONS (6)
  - Neutropenia [Recovered/Resolved]
  - Leukopenia [Recovered/Resolved]
  - Thrombocytopenia [Recovered/Resolved]
  - Anaemia [Recovered/Resolved]
  - Foetal exposure during pregnancy [Unknown]
  - Premature baby [Unknown]
